FAERS Safety Report 24073224 (Version 1)
Quarter: 2024Q3

REPORT INFORMATION
  Report Type: Spontaneous
  Country: BE (occurrence: BE)
  Receive Date: 20240710
  Receipt Date: 20240710
  Transmission Date: 20241016
  Serious: Yes (Other)
  Sender: ELI LILLY AND CO
  Company Number: BE-ELI_LILLY_AND_COMPANY-BE202407000653

PATIENT
  Age: 44 Year
  Sex: Male

DRUGS (1)
  1. TALTZ [Suspect]
     Active Substance: IXEKIZUMAB
     Indication: Psoriasis
     Dosage: UNK UNK, OTHER (EVERY FOUR WEEKS)
     Route: 065

REACTIONS (1)
  - Lymphoma [Unknown]
